FAERS Safety Report 12453439 (Version 3)
Quarter: 2017Q1

REPORT INFORMATION
  Report Type: Spontaneous
  Country: US (occurrence: US)
  Receive Date: 20160609
  Receipt Date: 20170113
  Transmission Date: 20170428
  Serious: Yes (Hospitalization, Other)
  Sender: FDA-Public Use
  Company Number: US-PFIZER INC-2015315228

PATIENT
  Age: 69 Year
  Sex: Female
  Weight: 113 kg

DRUGS (15)
  1. VANCOMYCIN [Suspect]
     Active Substance: VANCOMYCIN
     Dosage: 4 G, UNK
  2. TOBRAMYCIN. [Suspect]
     Active Substance: TOBRAMYCIN
     Dosage: 3.6 G, UNK
  3. SOLIFENACIN [Concomitant]
     Active Substance: SOLIFENACIN
     Dosage: UNK
  4. TOBRAMYCIN. [Suspect]
     Active Substance: TOBRAMYCIN
     Dosage: 10.8 G,UNK
  5. VANCOMYCIN [Suspect]
     Active Substance: VANCOMYCIN
     Dosage: 750 MG, EVERY 12 H
     Route: 042
  6. DULOXETINE. [Concomitant]
     Active Substance: DULOXETINE
     Dosage: UNK
  7. MORPHINE [Concomitant]
     Active Substance: MORPHINE
     Dosage: UNK
  8. RIFAMPIN. [Concomitant]
     Active Substance: RIFAMPIN
     Indication: OSTEOMYELITIS
     Dosage: UNK
     Route: 048
  9. VANCOMYCIN [Suspect]
     Active Substance: VANCOMYCIN
     Dosage: 12 G, UNK
  10. PAROXETINE. [Concomitant]
     Active Substance: PAROXETINE
     Dosage: UNK
  11. ZOSYN [Suspect]
     Active Substance: PIPERACILLIN SODIUM\TAZOBACTAM SODIUM
     Dosage: 3.375 MG, EVERY 6 HOURS
     Route: 042
  12. VANCOMYCIN [Suspect]
     Active Substance: VANCOMYCIN
     Dosage: 1 G, EVERY 12 H
     Route: 042
  13. LISINOPRIL. [Suspect]
     Active Substance: LISINOPRIL
     Indication: HYPERTENSION
     Dosage: 20 MG, 1X/DAY
     Route: 048
  14. HYDROCODONE-ACETAMINOPHEN [Concomitant]
     Active Substance: ACETAMINOPHEN\HYDROCODONE
     Dosage: UNK
  15. AMLODIPINE [Concomitant]
     Active Substance: AMLODIPINE BESYLATE
     Dosage: UNK

REACTIONS (2)
  - Acute kidney injury [Recovered/Resolved]
  - Drug level increased [Unknown]

NARRATIVE: CASE EVENT DATE: 20121207
